FAERS Safety Report 7474808-2 (Version None)
Quarter: 2011Q2

REPORT INFORMATION
  Report Type: 
  Country: None (occurrence: None)
  Receive Date: 20110505
  Receipt Date: 20110419
  Transmission Date: 20111010
  Serious: Yes (Hospitalization)
  Sender: FDA-Public Use
  Company Number: SE-ACCORD-008781

PATIENT
  Age: 68 Year
  Sex: Male

DRUGS (9)
  1. PRIMPERAN TAB [Concomitant]
  2. IRINOTECAN HCL [Suspect]
     Indication: COLON CANCER METASTATIC
     Dosage: 360.0 MG, INTRAVENOUS (NOT OTHERWISE SPECIFIED)
     Route: 042
     Dates: start: 20100101, end: 20101116
  3. ONDANSETRON [Concomitant]
  4. NOVORAPID [Concomitant]
  5. LANTUS [Concomitant]
  6. BETAPRED [Concomitant]
  7. FLUOROURACIL [Suspect]
     Indication: COLON CANCER METASTATIC
     Dosage: 4.80-G- INTRAVENOUS (NOT OTHERWISE SPECIFIED)
     Route: 042
     Dates: start: 20101101, end: 20101115
  8. LEVOTHYROXINE SODIUM [Concomitant]
  9. ATROPIN CHAUVIN [Concomitant]

REACTIONS (6)
  - APHASIA [None]
  - CEREBRAL INFARCTION [None]
  - LOSS OF CONSCIOUSNESS [None]
  - INFUSION RELATED REACTION [None]
  - NO REACTION ON PREVIOUS EXPOSURE TO DRUG [None]
  - ACTIVITIES OF DAILY LIVING IMPAIRED [None]
